FAERS Safety Report 4460095-6 (Version None)
Quarter: 2004Q3

REPORT INFORMATION
  Report Type: 
  Country: None (occurrence: None)
  Receive Date: 20040928
  Receipt Date: 20031205
  Transmission Date: 20050211
  Serious: No
  Sender: FDA-Public Use
  Company Number: US-GLAXOSMITHKLINE-A0442179A

PATIENT
  Age: 66 Year
  Sex: Female

DRUGS (2)
  1. SEREVENT [Suspect]
     Dosage: 50MCG PER DAY
     Route: 055
     Dates: start: 20031203, end: 20031203
  2. COMBIVENT [Concomitant]

REACTIONS (1)
  - PHARYNGOLARYNGEAL PAIN [None]
